FAERS Safety Report 5385602-0 (Version None)
Quarter: 2007Q3

REPORT INFORMATION
  Report Type: 
  Country: None (occurrence: None)
  Receive Date: 20070712
  Receipt Date: 20070703
  Transmission Date: 20080115
  Serious: Yes (Hospitalization)
  Sender: FDA-Public Use
  Company Number: HQWYE600113JUN07

PATIENT
  Sex: Male
  Weight: 82 kg

DRUGS (9)
  1. TEMSIROLIMUS [Suspect]
     Indication: RENAL CELL CARCINOMA STAGE IV
     Route: 042
     Dates: start: 20070518
  2. OPTICRON [Concomitant]
     Indication: HYPERSENSITIVITY
     Dosage: UNKNOWN DOSE
     Dates: start: 20040101
  3. FUROSEMIDE [Concomitant]
     Indication: OEDEMA
     Dosage: 40 MG 1 TIME PER 1 DAY AS NEEDED FOR EDEMA
     Route: 065
     Dates: start: 20041127
  4. OMEPRAZOLE [Concomitant]
     Indication: REFLUX OESOPHAGITIS
     Dosage: 20 MG 1 TIME PER 1 DAY BEFORE A MEAL
     Route: 065
     Dates: start: 20061013
  5. COMPAZINE [Concomitant]
     Indication: NAUSEA
     Dosage: 10 MG EVERY FOUR HOURS AS NEEDED
     Route: 065
     Dates: start: 20070525
  6. DIMETICONE, ACTIVATED [Concomitant]
     Indication: FLATULENCE
     Dosage: 80 MG THREE TIMES PER 1 DAY AS NEEDED
     Route: 065
     Dates: start: 20070502
  7. DOCUSATE SODIUM [Concomitant]
     Indication: CONSTIPATION
     Dosage: 250 MG 1 OR 2 TIMES PER 1 DAY AS NEEDED FOR CONSTIPATION
     Route: 065
     Dates: start: 20061012
  8. TEMAZEPAM [Concomitant]
     Indication: INSOMNIA
     Dates: start: 20061012
  9. POTASSIUM ACETATE [Concomitant]
     Indication: ELECTROLYTE SUBSTITUTION THERAPY
     Dosage: 10 MEQ WITH FUROSEMIDE
     Route: 065
     Dates: start: 20041127

REACTIONS (2)
  - PATHOLOGICAL FRACTURE [None]
  - RECTAL HAEMORRHAGE [None]
